FAERS Safety Report 5423021-9 (Version None)
Quarter: 2007Q3

REPORT INFORMATION
  Report Type: 
  Country: None (occurrence: None)
  Receive Date: 20070822
  Receipt Date: 20070810
  Transmission Date: 20080115
  Serious: Yes (Other)
  Sender: FDA-Public Use
  Company Number: CL-PFIZER INC-2007067576

PATIENT
  Age: 74 Year
  Sex: Female
  Weight: 60 kg

DRUGS (5)
  1. GABAPENTIN [Suspect]
     Indication: NEURALGIA
     Route: 048
  2. ROSUVASTATIN [Concomitant]
     Route: 048
  3. AMLODIPINE [Concomitant]
     Route: 048
  4. ISOSORBIDE DINITRATE [Concomitant]
     Route: 048
  5. TIMOLOL MALEATE [Concomitant]
     Route: 047

REACTIONS (2)
  - INTRAOCULAR PRESSURE INCREASED [None]
  - WEIGHT INCREASED [None]
